FAERS Safety Report 9748206 (Version 1)
Quarter: 2013Q4

REPORT INFORMATION
  Report Type: Spontaneous
  Country: US (occurrence: US)
  Receive Date: 20131212
  Receipt Date: 20131212
  Transmission Date: 20140711
  Serious: No
  Sender: FDA-Public Use
  Company Number: US-PFIZER INC-2013355088

PATIENT
  Age: 67 Year
  Sex: Female
  Weight: 89.34 kg

DRUGS (2)
  1. LYRICA [Suspect]
     Indication: FIBROMYALGIA
     Dosage: 200MG IN THE MORNING AND 100MG AT NIGHT
     Route: 048
  2. LYRICA [Suspect]
     Dosage: 200MG IN THE MORNING AND 100MG AT NIGHT
     Route: 048

REACTIONS (3)
  - Oxygen saturation decreased [Unknown]
  - Weight abnormal [Unknown]
  - Drug ineffective [Unknown]
